FAERS Safety Report 4656620-2 (Version None)
Quarter: 2005Q2

REPORT INFORMATION
  Report Type: 
  Country: None (occurrence: None)
  Receive Date: 20050506
  Receipt Date: 20050423
  Transmission Date: 20051028
  Serious: Yes (Other)
  Sender: FDA-Public Use
  Company Number: 2005065527

PATIENT
  Age: 21 Year
  Sex: Female
  Weight: 97.5234 kg

DRUGS (1)
  1. DEPO-PROVERA [Suspect]
     Indication: CONTRACEPTION
     Dosage: 150 MG (150 MG, 1 ST INJECTION: EVERY 10-13 WKS),INTRAMUSCULAR
     Route: 030
     Dates: start: 20001201, end: 20001201

REACTIONS (4)
  - AMENORRHOEA [None]
  - HAEMORRHAGE [None]
  - METRORRHAGIA [None]
  - POLYP [None]
